FAERS Safety Report 25223912 (Version 1)
Quarter: 2025Q2

REPORT INFORMATION
  Report Type: Spontaneous
  Country: CA (occurrence: CA)
  Receive Date: 20250422
  Receipt Date: 20250422
  Transmission Date: 20250716
  Serious: Yes (Life-Threatening, Hospitalization)
  Sender: SANDOZ
  Company Number: CA-SANDOZ-SDZ2023CA040753

PATIENT
  Age: 80 Year
  Sex: Female

DRUGS (1)
  1. CANDESARTAN CILEXETIL\HYDROCHLOROTHIAZIDE [Suspect]
     Active Substance: CANDESARTAN CILEXETIL\HYDROCHLOROTHIAZIDE
     Indication: Product used for unknown indication
     Route: 065

REACTIONS (1)
  - Hyponatraemia [Recovering/Resolving]
